FAERS Safety Report 25506773 (Version 1)
Quarter: 2025Q3

REPORT INFORMATION
  Report Type: Spontaneous
  Country: US (occurrence: US)
  Receive Date: 20250702
  Receipt Date: 20250702
  Transmission Date: 20251020
  Serious: No
  Sender: RADIUS PHARM
  Company Number: US-RADIUS HEALTH INC.-2024US005670

PATIENT
  Sex: Female

DRUGS (3)
  1. TYMLOS [Suspect]
     Active Substance: ABALOPARATIDE
     Indication: Senile osteoporosis
     Route: 058
  2. MELOXICAM [Concomitant]
     Active Substance: MELOXICAM
  3. PAROXETINE [Concomitant]
     Active Substance: PAROXETINE

REACTIONS (7)
  - Injection site pain [Not Recovered/Not Resolved]
  - Unevaluable event [Unknown]
  - Hypotension [Unknown]
  - Sleep disorder [Unknown]
  - Nocturia [Unknown]
  - Dizziness [Unknown]
  - Therapy interrupted [Unknown]
